FAERS Safety Report 4676575-4 (Version None)
Quarter: 2005Q2

REPORT INFORMATION
  Report Type: 
  Country: None (occurrence: None)
  Receive Date: 20050526
  Receipt Date: 20050520
  Transmission Date: 20051028
  Serious: Yes (Hospitalization, Other)
  Sender: FDA-Public Use
  Company Number: 05-05-0917

PATIENT
  Age: 57 Year
  Sex: Female

DRUGS (3)
  1. CYCLOSPORINE [Suspect]
     Dosage: 200MG QD
     Dates: start: 19880101, end: 19971001
  2. AZATHIOPRINE [Concomitant]
  3. CORTICOSTEROIDS [Concomitant]

REACTIONS (5)
  - AMYOTROPHY [None]
  - MOTOR DYSFUNCTION [None]
  - MYOPATHY STEROID [None]
  - NEUROLOGICAL EXAMINATION ABNORMAL [None]
  - SENSORY DISTURBANCE [None]
